FAERS Safety Report 9812518 (Version 2)
Quarter: 2014Q1

REPORT INFORMATION
  Report Type: Spontaneous
  Country: SE (occurrence: SE)
  Receive Date: 20140113
  Receipt Date: 20140214
  Transmission Date: 20141002
  Serious: Yes (Hospitalization, Other)
  Sender: FDA-Public Use
  Company Number: SE-JNJFOC-20140104032

PATIENT
  Age: 52 Year
  Sex: Male

DRUGS (6)
  1. LEUSTATIN [Suspect]
     Indication: HAIRY CELL LEUKAEMIA
     Route: 065
     Dates: start: 20130218, end: 20130222
  2. MERONEM [Suspect]
     Indication: HAIRY CELL LEUKAEMIA
     Route: 065
     Dates: start: 20130224, end: 20130301
  3. ALLOPURINOL [Concomitant]
     Route: 065
  4. BACTRIM FORTE [Concomitant]
     Route: 065
  5. VALTREX [Concomitant]
     Route: 065
  6. VANCOMYCIN [Concomitant]
     Route: 065
     Dates: start: 20130227

REACTIONS (4)
  - Pyrexia [Recovered/Resolved]
  - Neutropenia [Recovered/Resolved]
  - Nerve degeneration [Not Recovered/Not Resolved]
  - Rash [Recovered/Resolved]
